FAERS Safety Report 10030593 (Version 1)
Quarter: 2014Q1

REPORT INFORMATION
  Report Type: Spontaneous
  Country: US (occurrence: US)
  Receive Date: 20140323
  Receipt Date: 20140323
  Transmission Date: 20141002
  Serious: No
  Sender: FDA-Public Use
  Company Number: US-ALLERGAN-1318257US

PATIENT
  Age: 47 Year
  Sex: Female

DRUGS (6)
  1. LATISSE 0.03% [Suspect]
     Indication: GROWTH OF EYELASHES
     Dosage: UNK
     Route: 061
     Dates: start: 20131015
  2. TOPOMAX NOS [Concomitant]
     Indication: MIGRAINE
     Dosage: UNK, QD
     Route: 048
  3. XANAX [Concomitant]
     Indication: MIGRAINE
     Route: 048
  4. WELLBUTRIN [Concomitant]
     Indication: MIGRAINE
     Route: 048
  5. REFRESHING DROP NOS [Concomitant]
     Indication: CONTACT LENS THERAPY
     Route: 047
  6. RESTASIS [Concomitant]
     Indication: DRY EYE

REACTIONS (3)
  - Incorrect dose administered [Unknown]
  - Trichorrhexis [Unknown]
  - Trichorrhexis [Unknown]
